FAERS Safety Report 6088958-9 (Version None)
Quarter: 2009Q1

REPORT INFORMATION
  Report Type: 
  Country: None (occurrence: None)
  Receive Date: 20090224
  Receipt Date: 20090219
  Transmission Date: 20090719
  Serious: Yes (Other)
  Sender: FDA-Public Use
  Company Number: JP-ASTRAZENECA-2009AP01356

PATIENT
  Age: 50 Year
  Sex: Female

DRUGS (2)
  1. NOLVADEX [Suspect]
     Indication: BREAST CANCER
     Dosage: DOSE UNKNOWN
     Route: 048
  2. LEUPROLIDE ACETATE [Concomitant]
     Indication: BREAST CANCER
     Dosage: DOSE UNKNOWN
     Route: 058

REACTIONS (1)
  - OPTIC NEURITIS [None]
